FAERS Safety Report 23751720 (Version 1)
Quarter: 2024Q2

REPORT INFORMATION
  Report Type: Spontaneous
  Country: US (occurrence: None)
  Receive Date: 20240416
  Receipt Date: 20240416
  Transmission Date: 20240716
  Serious: No
  Sender: FDA-Public Use
  Company Number: None

PATIENT
  Sex: Male

DRUGS (1)
  1. CYCLOPHOSPHAMIDE [Suspect]
     Active Substance: CYCLOPHOSPHAMIDE
     Indication: Lymphatic system neoplasm
     Dosage: OTHER FREQUENCY : DAY 1,8,15,22;?
     Route: 048
     Dates: start: 20240322, end: 20240415

REACTIONS (2)
  - Dehydration [None]
  - Diarrhoea [None]
